FAERS Safety Report 10398375 (Version 1)
Quarter: 2014Q1

REPORT INFORMATION
  Report Type: Spontaneous
  Country: US (occurrence: None)
  Receive Date: 20130815
  Receipt Date: 20130815
  Transmission Date: 20141002
  Serious: Yes (Other)
  Sender: FDA-Public Use
  Company Number: ADR-2013-00684

PATIENT
  Age: 47 Year
  Sex: Female

DRUGS (3)
  1. LIORESAL INTRATHECAL (BACLOFEN INJECTION) [Suspect]
     Indication: MUSCLE SPASTICITY
  2. LIORESAL INTRATHECAL (BACLOFEN INJECTION) [Suspect]
     Indication: MULTIPLE SCLEROSIS
  3. IV ANTIBIOTICS [Concomitant]

REACTIONS (4)
  - Wound infection [None]
  - Implant site erythema [None]
  - Implant site discharge [None]
  - Wound dehiscence [None]
